FAERS Safety Report 5797828-2 (Version None)
Quarter: 2008Q3

REPORT INFORMATION
  Report Type: 
  Country: None (occurrence: None)
  Receive Date: 20080702
  Receipt Date: 20080622
  Transmission Date: 20090109
  Serious: Yes (Other)
  Sender: FDA-Public Use
  Company Number: FR-JNJFOC-20080605557

PATIENT
  Sex: Male
  Weight: 100 kg

DRUGS (4)
  1. REOPRO [Suspect]
     Indication: DRUG USE FOR UNKNOWN INDICATION
     Dosage: IN A BOLUS INSTEAD OF IV, THEN 6 ML DURING 2 HOURS
     Route: 042
  2. LOVENOX [Concomitant]
     Route: 042
  3. ASPEGIC 325 [Concomitant]
     Route: 042
  4. PLAVIX [Concomitant]
     Dosage: ^4 COMPRIMES^

REACTIONS (4)
  - ACCIDENTAL OVERDOSE [None]
  - CHEST PAIN [None]
  - STENT PLACEMENT [None]
  - THROMBOCYTOPENIA [None]
